FAERS Safety Report 4603884-7 (Version None)
Quarter: 2005Q1

REPORT INFORMATION
  Report Type: 
  Country: None (occurrence: None)
  Receive Date: 20050308
  Receipt Date: 20050224
  Transmission Date: 20050727
  Serious: Yes (Death)
  Sender: FDA-Public Use
  Company Number: HQWYE607225FEB05

PATIENT
  Age: 69 Year
  Sex: Male

DRUGS (1)
  1. MYLOTARG [Suspect]
     Indication: ACUTE MYELOID LEUKAEMIA
     Dosage: 9 MG/M^1X PER 1 DAY, INTRAVENOUS
     Route: 042

REACTIONS (8)
  - DIARRHOEA [None]
  - HEPATIC FUNCTION ABNORMAL [None]
  - NEUTROPENIA [None]
  - PORTAL VEIN THROMBOSIS [None]
  - PYREXIA [None]
  - RENAL IMPAIRMENT [None]
  - VENOOCCLUSIVE LIVER DISEASE [None]
  - VOMITING [None]
